FAERS Safety Report 15831812 (Version 1)
Quarter: 2019Q1

REPORT INFORMATION
  Report Type: Spontaneous
  Country: NL (occurrence: NL)
  Receive Date: 20190116
  Receipt Date: 20190116
  Transmission Date: 20190417
  Serious: Yes (Other)
  Sender: FDA-Public Use
  Company Number: NL-ACCORD-102146

PATIENT
  Age: 59 Year
  Sex: Female

DRUGS (1)
  1. SERTRALINE ACCORD [Suspect]
     Active Substance: SERTRALINE HYDROCHLORIDE
     Indication: PRODUCT USED FOR UNKNOWN INDICATION
     Dosage: HALF A 50 MG TABLET. PER DAY
     Dates: start: 20160721, end: 20160723

REACTIONS (5)
  - Body temperature fluctuation [Recovering/Resolving]
  - Apnoea [Recovering/Resolving]
  - Hyperhidrosis [Recovering/Resolving]
  - Dyskinesia [Recovering/Resolving]
  - Hallucination [Recovering/Resolving]

NARRATIVE: CASE EVENT DATE: 20160721
